FAERS Safety Report 19614923 (Version 1)
Quarter: 2021Q3

REPORT INFORMATION
  Report Type: Spontaneous
  Country: US (occurrence: US)
  Receive Date: 20210726
  Receipt Date: 20210726
  Transmission Date: 20211014
  Serious: Yes (Hospitalization)
  Sender: FDA-Public Use
  Company Number: None

PATIENT
  Sex: Male
  Weight: 89.36 kg

DRUGS (11)
  1. LABETOLOL [Concomitant]
     Active Substance: LABETALOL HYDROCHLORIDE
  2. SYNTHROID [Concomitant]
     Active Substance: LEVOTHYROXINE SODIUM
  3. KEYTRUDA [Concomitant]
     Active Substance: PEMBROLIZUMAB
  4. LEVET IRACETAM [Concomitant]
  5. VIZIMPRO [Suspect]
     Active Substance: DACOMITINIB
     Indication: LUNG NEOPLASM MALIGNANT
     Route: 048
  6. MULTIVITAMIN [Concomitant]
     Active Substance: VITAMINS
  7. ZOCOR [Concomitant]
     Active Substance: SIMVASTATIN
  8. HYDROCHLOROTHIAZIDE. [Concomitant]
     Active Substance: HYDROCHLOROTHIAZIDE
  9. PROTONIX [Concomitant]
     Active Substance: PANTOPRAZOLE SODIUM
  10. FLOMAX [Concomitant]
     Active Substance: TAMSULOSIN HYDROCHLORIDE
  11. CALCIUM CARBONATE?CHOLECALCIFEROL [Concomitant]

REACTIONS (1)
  - Hospitalisation [None]
